FAERS Safety Report 24137451 (Version 1)
Quarter: 2024Q3

REPORT INFORMATION
  Report Type: Spontaneous
  Country: US (occurrence: None)
  Receive Date: 20240725
  Receipt Date: 20240725
  Transmission Date: 20241017
  Serious: No
  Sender: Public
  Company Number: None

PATIENT
  Age: 59 Year
  Sex: Female
  Weight: 84.82 kg

DRUGS (1)
  1. ENBREL [Suspect]
     Active Substance: BENZYL ALCOHOL\ETANERCEPT
     Indication: Psoriatic arthropathy
     Dosage: FREQUENCY : WEEKLY;?
     Route: 058
     Dates: start: 202010

REACTIONS (7)
  - Loss of consciousness [None]
  - Obstruction [None]
  - Ill-defined disorder [None]
  - Unevaluable event [None]
  - Alopecia [None]
  - Seizure [None]
  - Pneumonia [None]
